FAERS Safety Report 8984574 (Version 6)
Quarter: 2013Q3

REPORT INFORMATION
  Report Type: Report from Study
  Country: FR (occurrence: FR)
  Receive Date: 20121226
  Receipt Date: 20130823
  Transmission Date: 20140515
  Serious: Yes (Other)
  Sender: FDA-Public Use
  Company Number: FR-MILLENNIUM PHARMACEUTICALS, INC.-2012-08989

PATIENT
  Sex: 0

DRUGS (9)
  1. VELCADE [Suspect]
     Indication: MANTLE CELL LYMPHOMA
     Dosage: 1.3 MG/M2, CYCLIC
     Route: 042
     Dates: start: 20120622, end: 20120629
  2. MABTHERA [Suspect]
     Indication: MANTLE CELL LYMPHOMA
     Dosage: 375 MG/M2, UNK
     Route: 042
     Dates: start: 20120622, end: 20120622
  3. MABTHERA [Suspect]
     Dosage: UNK
     Route: 042
     Dates: start: 20120720
  4. LEVACT [Suspect]
     Indication: MANTLE CELL LYMPHOMA
     Dosage: 90 MG/M2, UNK
     Route: 042
     Dates: start: 20120622, end: 20120623
  5. LEVACT [Suspect]
     Dosage: UNK
     Route: 042
     Dates: start: 20120720, end: 20120721
  6. DEXAMETHASONE [Suspect]
     Indication: MANTLE CELL LYMPHOMA
     Dosage: 40 MG, UNK
     Route: 042
     Dates: start: 20120623, end: 20120623
  7. DEXAMETHASONE [Suspect]
     Dosage: UNK
     Route: 042
     Dates: start: 20120721
  8. POLARAMINE                         /00043702/ [Concomitant]
     Dosage: 5 MG, UNK
     Dates: start: 20060622
  9. DAFALGAN /00020001/ [Concomitant]
     Dosage: 1000 MG, UNK
     Dates: start: 20090622

REACTIONS (2)
  - Accidental overdose [Recovered/Resolved]
  - Drug prescribing error [Recovered/Resolved]
